FAERS Safety Report 5399506-0 (Version None)
Quarter: 2007Q3

REPORT INFORMATION
  Report Type: 
  Country: None (occurrence: None)
  Receive Date: 20070727
  Receipt Date: 20070702
  Transmission Date: 20080115
  Serious: Yes (Hospitalization, Other)
  Sender: FDA-Public Use
  Company Number: US-PFIZER INC-2006123341

PATIENT
  Sex: Male
  Weight: 104.3 kg

DRUGS (2)
  1. CELEBREX [Suspect]
     Indication: PAIN
     Route: 048
     Dates: start: 20000615, end: 20010616
  2. VIOXX [Suspect]
     Indication: ARTHRITIS
     Dosage: DAILY DOSE:75MG
     Route: 048

REACTIONS (3)
  - CARDIOVASCULAR DISORDER [None]
  - DEPRESSION [None]
  - MYOCARDIAL INFARCTION [None]
